FAERS Safety Report 14255593 (Version 2)
Quarter: 2017Q4

REPORT INFORMATION
  Report Type: Report from Study
  Country: US (occurrence: US)
  Receive Date: 20171206
  Receipt Date: 20171212
  Transmission Date: 20180321
  Serious: Yes (Other)
  Sender: FDA-Public Use
  Company Number: US-MALLINCKRODT-T201704785

PATIENT
  Sex: Female
  Weight: 98 kg

DRUGS (1)
  1. REPOSITORY CORTICOTROPIN INJECTION [Suspect]
     Active Substance: CORTICOTROPIN
     Indication: SYSTEMIC LUPUS ERYTHEMATOSUS
     Dosage: 80 UNITS/ML, TWICE A WEEK
     Route: 058
     Dates: start: 20171108, end: 20171108

REACTIONS (2)
  - Hypersensitivity [Recovering/Resolving]
  - Urticaria [Recovering/Resolving]
